FAERS Safety Report 19544686 (Version 1)
Quarter: 2021Q3

REPORT INFORMATION
  Report Type: Report from Study
  Country: NL (occurrence: NL)
  Receive Date: 20210713
  Receipt Date: 20210713
  Transmission Date: 20211014
  Serious: Yes (Death)
  Sender: FDA-Public Use
  Company Number: NL-VER-202100112

PATIENT
  Sex: Male

DRUGS (1)
  1. TRIPTORELIN PAMOATE [Suspect]
     Active Substance: TRIPTORELIN PAMOATE
     Indication: PROSTATE CANCER
     Dosage: OTHER BATCH NUMBERS : T01810 AND 03852
     Route: 030
     Dates: start: 20180404

REACTIONS (2)
  - Prostate cancer metastatic [Fatal]
  - Chronic obstructive pulmonary disease [Fatal]
